FAERS Safety Report 8681709 (Version 2)
Quarter: 2013Q4

REPORT INFORMATION
  Report Type: Spontaneous
  Country: JP (occurrence: JP)
  Receive Date: 20120725
  Receipt Date: 20131031
  Transmission Date: 20140711
  Serious: Yes (Hospitalization, Other)
  Sender: FDA-Public Use
  Company Number: JP-009507513-1207JPN009198

PATIENT
  Age: 40 Year
  Sex: Male

DRUGS (2)
  1. REFLEX [Suspect]
     Indication: INSOMNIA
     Dosage: 15 MG
     Route: 048
     Dates: start: 201207
  2. REFLEX [Suspect]
     Indication: DEPRESSION

REACTIONS (1)
  - Renal failure acute [Unknown]
